FAERS Safety Report 9414535 (Version 2)
Quarter: 2013Q3

REPORT INFORMATION
  Report Type: Spontaneous
  Country: MX (occurrence: MX)
  Receive Date: 20130723
  Receipt Date: 20130729
  Transmission Date: 20140515
  Serious: No
  Sender: FDA-Public Use
  Company Number: MX-ABBOTT-13P-107-1123582-00

PATIENT
  Age: 61 Year
  Sex: Female
  Weight: 52 kg

DRUGS (5)
  1. HUMIRA [Suspect]
     Indication: PRODUCT USED FOR UNKNOWN INDICATION
     Route: 058
     Dates: start: 20121026, end: 20121207
  2. OMEPRAZOLE [Concomitant]
     Indication: GASTRITIS
     Route: 058
  3. LOSARTAN [Concomitant]
     Indication: HYPERTENSION
     Route: 048
  4. LOSARTAN / HYDROCHLOROTHIAZID STADA [Concomitant]
     Indication: HYPERTENSION
     Dosage: 50/12.5 MG
     Route: 048
  5. RISEDRONATE [Concomitant]
     Indication: PRODUCT USED FOR UNKNOWN INDICATION
     Route: 048

REACTIONS (1)
  - Epistaxis [Recovered/Resolved]
